FAERS Safety Report 12862714 (Version 1)
Quarter: 2016Q4

REPORT INFORMATION
  Report Type: Spontaneous
  Country: US (occurrence: US)
  Receive Date: 20161019
  Receipt Date: 20161019
  Transmission Date: 20170207
  Serious: No
  Sender: FDA-Public Use
  Company Number: US-ASTELLAS-2015US044004

PATIENT
  Age: 62 Year
  Sex: Female

DRUGS (25)
  1. MYCAMINE [Suspect]
     Active Substance: MICAFUNGIN SODIUM
     Indication: HYPOXIA
  2. MYCAMINE [Suspect]
     Active Substance: MICAFUNGIN SODIUM
     Indication: RESPIRATORY FAILURE
  3. MYCAMINE [Suspect]
     Active Substance: MICAFUNGIN SODIUM
     Indication: SEPTIC SHOCK
  4. MYCAMINE [Suspect]
     Active Substance: MICAFUNGIN SODIUM
     Indication: HYPOMAGNESAEMIA
  5. MYCAMINE [Suspect]
     Active Substance: MICAFUNGIN SODIUM
     Indication: METABOLIC ENCEPHALOPATHY
  6. MYCAMINE [Suspect]
     Active Substance: MICAFUNGIN SODIUM
     Indication: THROMBOCYTOPENIA
  7. MYCAMINE [Suspect]
     Active Substance: MICAFUNGIN SODIUM
     Indication: TYPE 2 DIABETES MELLITUS
  8. MYCAMINE [Suspect]
     Active Substance: MICAFUNGIN SODIUM
     Indication: PHOSPHORUS METABOLISM DISORDER
  9. MYCAMINE [Suspect]
     Active Substance: MICAFUNGIN SODIUM
     Indication: PATHOGEN RESISTANCE
  10. MYCAMINE [Suspect]
     Active Substance: MICAFUNGIN SODIUM
     Indication: NOSOCOMIAL INFECTION
  11. MYCAMINE [Suspect]
     Active Substance: MICAFUNGIN SODIUM
     Indication: HYPOKALAEMIA
  12. MYCAMINE [Suspect]
     Active Substance: MICAFUNGIN SODIUM
     Indication: PNEUMONIA
  13. MYCAMINE [Suspect]
     Active Substance: MICAFUNGIN SODIUM
     Indication: CARDIAC FAILURE CONGESTIVE
  14. MYCAMINE [Suspect]
     Active Substance: MICAFUNGIN SODIUM
     Indication: DEVICE DEPENDENCE
  15. MYCAMINE [Suspect]
     Active Substance: MICAFUNGIN SODIUM
     Indication: BACTERIAL DISEASE CARRIER
  16. MYCAMINE [Suspect]
     Active Substance: MICAFUNGIN SODIUM
     Indication: ACUTE KIDNEY INJURY
  17. MYCAMINE [Suspect]
     Active Substance: MICAFUNGIN SODIUM
     Indication: ULCER
  18. MYCAMINE [Suspect]
     Active Substance: MICAFUNGIN SODIUM
     Indication: FLUID OVERLOAD
  19. MYCAMINE [Suspect]
     Active Substance: MICAFUNGIN SODIUM
     Indication: SEPSIS
     Route: 042
     Dates: start: 20151016, end: 20151022
  20. MYCAMINE [Suspect]
     Active Substance: MICAFUNGIN SODIUM
     Indication: COAGULOPATHY
  21. MYCAMINE [Suspect]
     Active Substance: MICAFUNGIN SODIUM
     Indication: ACIDOSIS
  22. MYCAMINE [Suspect]
     Active Substance: MICAFUNGIN SODIUM
     Indication: ANAEMIA
  23. MYCAMINE [Suspect]
     Active Substance: MICAFUNGIN SODIUM
     Indication: END STAGE RENAL DISEASE
  24. MYCAMINE [Suspect]
     Active Substance: MICAFUNGIN SODIUM
     Indication: HEART TRANSPLANT
  25. MYCAMINE [Suspect]
     Active Substance: MICAFUNGIN SODIUM
     Indication: URINARY TRACT INFECTION

REACTIONS (1)
  - Off label use [Unknown]

NARRATIVE: CASE EVENT DATE: 20151016
